FAERS Safety Report 8338358-3 (Version None)
Quarter: 2012Q2

REPORT INFORMATION
  Report Type: 
  Country: None (occurrence: None)
  Receive Date: 20120504
  Receipt Date: 20120501
  Transmission Date: 20120825
  Serious: Yes (Death, Hospitalization, Other)
  Sender: FDA-Public Use
  Company Number: AU-ROCHE-1035173

PATIENT
  Sex: Male

DRUGS (1)
  1. VEMURAFENIB [Suspect]
     Indication: PRODUCT USED FOR UNKNOWN INDICATION
     Dates: end: 20111201

REACTIONS (6)
  - HEPATOTOXICITY [None]
  - HYPONATRAEMIA [None]
  - FALL [None]
  - DEHYDRATION [None]
  - DISEASE PROGRESSION [None]
  - CONFUSIONAL STATE [None]
